FAERS Safety Report 5761726-0 (Version None)
Quarter: 2008Q2

REPORT INFORMATION
  Report Type: 
  Country: None (occurrence: None)
  Receive Date: 20080606
  Receipt Date: 20080527
  Transmission Date: 20081010
  Serious: Yes (Death)
  Sender: FDA-Public Use
  Company Number: US-PFIZER INC-2008027284

PATIENT
  Sex: Female
  Weight: 61 kg

DRUGS (11)
  1. ZOLOFT [Suspect]
     Indication: DEPRESSION
     Route: 048
  2. DURAGESIC-100 [Suspect]
     Indication: PAIN
     Route: 062
     Dates: start: 20070401, end: 20070509
  3. VICODIN ES [Suspect]
     Indication: PAIN
     Route: 048
  4. AMITRIPTYLINE HCL [Suspect]
     Indication: DEPRESSION
     Route: 048
  5. PROVIGIL [Suspect]
  6. LEVOXYL [Suspect]
     Route: 048
  7. LUNESTA [Suspect]
     Route: 048
  8. KLONOPIN [Suspect]
     Route: 048
  9. ARAVA [Suspect]
     Indication: RHEUMATOID ARTHRITIS
  10. OXYMORPHONE HCL [Suspect]
     Indication: PAIN
     Route: 048
     Dates: start: 20070407, end: 20070509
  11. OXYMORPHONE HCL [Suspect]
     Indication: BREAKTHROUGH PAIN
     Route: 048
     Dates: start: 20070407, end: 20070509

REACTIONS (1)
  - DRUG TOXICITY [None]
